FAERS Safety Report 18702574 (Version 1)
Quarter: 2021Q1

REPORT INFORMATION
  Report Type: Spontaneous
  Country: US (occurrence: US)
  Receive Date: 20210105
  Receipt Date: 20210105
  Transmission Date: 20210419
  Serious: Yes (Hospitalization, Other)
  Sender: FDA-Public Use
  Company Number: US-PURDUE-USA-2020-0166523

PATIENT
  Sex: Male

DRUGS (1)
  1. OXYCONTIN [Suspect]
     Active Substance: OXYCODONE HYDROCHLORIDE
     Indication: PRODUCT USED FOR UNKNOWN INDICATION
     Dosage: UNK, UNK
     Route: 064

REACTIONS (12)
  - Attention deficit hyperactivity disorder [Unknown]
  - Drug dependence [Unknown]
  - Hospitalisation [Unknown]
  - Foetal exposure during pregnancy [Unknown]
  - Emotional disorder [Unknown]
  - Learning disability [Unknown]
  - Feeding disorder [Unknown]
  - Premature baby [Unknown]
  - Anxiety [Unknown]
  - Drug withdrawal syndrome neonatal [Unknown]
  - Abnormal behaviour [Unknown]
  - Gastrooesophageal reflux disease [Unknown]
